FAERS Safety Report 5884691-4 (Version None)
Quarter: 2008Q3

REPORT INFORMATION
  Report Type: 
  Country: None (occurrence: None)
  Receive Date: 20080916
  Receipt Date: 20080902
  Transmission Date: 20090109
  Serious: Yes (Hospitalization)
  Sender: FDA-Public Use
  Company Number: PHHO1998GB04202

PATIENT
  Sex: Male
  Weight: 67 kg

DRUGS (1)
  1. EXELON [Suspect]
     Dosage: HIGH DOSE
     Route: 048
     Dates: start: 19910614

REACTIONS (2)
  - ABDOMINAL PAIN [None]
  - MALAISE [None]
